FAERS Safety Report 8334887-7 (Version None)
Quarter: 2012Q2

REPORT INFORMATION
  Report Type: 
  Country: None (occurrence: None)
  Receive Date: 20120503
  Receipt Date: 20100224
  Transmission Date: 20120825
  Serious: No
  Sender: FDA-Public Use
  Company Number: US-TEVA-2010001092

PATIENT
  Sex: Female
  Weight: 71.732 kg

DRUGS (3)
  1. NUVIGIL [Suspect]
     Dosage: 75 MILLIGRAM;
     Route: 048
     Dates: start: 20100211, end: 20100224
  2. ESTROGEN [Concomitant]
  3. NUVIGIL [Suspect]
     Indication: SOMNOLENCE
     Dosage: 150 MILLIGRAM;
     Route: 048
     Dates: start: 20100210, end: 20100210

REACTIONS (7)
  - IRRITABILITY [None]
  - INTENTIONAL DRUG MISUSE [None]
  - HEART RATE INCREASED [None]
  - PALPITATIONS [None]
  - HEADACHE [None]
  - BLOOD PRESSURE INCREASED [None]
  - DRUG INEFFECTIVE FOR UNAPPROVED INDICATION [None]
